FAERS Safety Report 25433953 (Version 1)
Quarter: 2025Q2

REPORT INFORMATION
  Report Type: Spontaneous
  Country: JP (occurrence: JP)
  Receive Date: 20250613
  Receipt Date: 20250613
  Transmission Date: 20250717
  Serious: Yes (Other)
  Sender: BRISTOL-MYERS SQUIBB COMPANY
  Company Number: JP-BRISTOL-MYERS SQUIBB COMPANY-2025-081229

PATIENT
  Age: 8 Decade

DRUGS (4)
  1. POMALYST [Suspect]
     Active Substance: POMALIDOMIDE
     Indication: Plasma cell myeloma refractory
  2. LENADEX [Suspect]
     Active Substance: DEXAMETHASONE ACETATE
     Indication: Plasma cell myeloma refractory
  3. ISATUXIMAB [Suspect]
     Active Substance: ISATUXIMAB
     Indication: Plasma cell myeloma refractory
  4. DENOSUMAB [Suspect]
     Active Substance: DENOSUMAB
     Indication: Product used for unknown indication

REACTIONS (7)
  - Enterocolitis [Unknown]
  - Chondrocalcinosis [Unknown]
  - Osteonecrosis of jaw [Unknown]
  - Pneumonia [Unknown]
  - COVID-19 [Unknown]
  - Gastroenteritis [Unknown]
  - Cognitive disorder [Unknown]
